FAERS Safety Report 17116210 (Version 3)
Quarter: 2023Q1

REPORT INFORMATION
  Report Type: Spontaneous
  Country: FR (occurrence: FR)
  Receive Date: 20191205
  Receipt Date: 20230317
  Transmission Date: 20230418
  Serious: Yes (Life-Threatening, Hospitalization, Other)
  Sender: FDA-Public Use
  Company Number: None

PATIENT
  Sex: Male
  Weight: 2.23 kg

DRUGS (21)
  1. CEFIXIME [Suspect]
     Active Substance: CEFIXIME
     Indication: Product used for unknown indication
     Dosage: 400 MILLIGRAM, QD
     Route: 064
     Dates: start: 20170515, end: 20170522
  2. CEFIXIME [Suspect]
     Active Substance: CEFIXIME
     Dosage: 200 MILLIGRAM, QD
     Route: 065
     Dates: start: 20170515, end: 20170522
  3. NOREPINEPHRINE\NOREPINEPHRINE BITARTRATE [Suspect]
     Active Substance: NOREPINEPHRINE\NOREPINEPHRINE BITARTRATE
     Indication: Product used for unknown indication
     Dosage: UNK
     Route: 064
  4. DUPHALAC [Suspect]
     Active Substance: LACTULOSE
     Indication: Product used for unknown indication
     Dosage: UNK
     Route: 064
     Dates: start: 20170523, end: 20170622
  5. PIPERACILLIN AND TAZOBACTAM [Suspect]
     Active Substance: PIPERACILLIN SODIUM\TAZOBACTAM SODIUM
     Indication: Product used for unknown indication
     Dosage: UNK
     Route: 064
  6. SUFENTANIL [Suspect]
     Active Substance: SUFENTANIL
     Indication: Sedative therapy
     Dosage: UNK
     Route: 064
     Dates: start: 20170428, end: 20170503
  7. CLOBAZAM [Suspect]
     Active Substance: CLOBAZAM
     Indication: Product used for unknown indication
     Dosage: 2 DOSAGE FORM, QD
     Route: 064
     Dates: start: 20170515, end: 20170614
  8. CLOBAZAM [Suspect]
     Active Substance: CLOBAZAM
     Dosage: 1 DOSAGE FORM, QD
     Route: 065
     Dates: start: 20170515, end: 20170614
  9. CHOLECALCIFEROL [Suspect]
     Active Substance: CHOLECALCIFEROL
     Indication: Product used for unknown indication
     Dosage: 1 DOSAGE FORM (PHIAL ORAL SOLUTION)
     Route: 064
     Dates: start: 20170522, end: 20170522
  10. MOVICOL [Suspect]
     Active Substance: POLYETHYLENE GLYCOL 3350\POTASSIUM CHLORIDE\SODIUM BICARBONATE\SODIUM CHLORIDE
     Indication: Product used for unknown indication
     Dosage: UNK
     Route: 064
     Dates: start: 20170515, end: 20170614
  11. OPTIRAY [Suspect]
     Active Substance: IOVERSOL
     Indication: Computerised tomogram head
     Dosage: 60 MILLILITER, TOTAL (350 MG D^I/ML)
     Route: 064
     Dates: start: 20170428, end: 20170428
  12. NIMOTOP [Suspect]
     Active Substance: NIMODIPINE
     Indication: Product used for unknown indication
     Dosage: 240 MILLIGRAM, QD
     Route: 064
  13. NIMOTOP [Suspect]
     Active Substance: NIMODIPINE
     Dosage: 60 MILLIGRAM, QD
     Route: 064
  14. BETAMETHASONE [Suspect]
     Active Substance: BETAMETHASONE
     Indication: Threatened labour
     Dosage: UNK
     Route: 064
     Dates: start: 20170502, end: 20170503
  15. PRIMPERAN [Suspect]
     Active Substance: METOCLOPRAMIDE HYDROCHLORIDE
     Indication: Product used for unknown indication
     Dosage: 30 MILLIGRAM, QD
     Route: 064
     Dates: start: 20170629, end: 20170809
  16. PRIMPERAN [Suspect]
     Active Substance: METOCLOPRAMIDE HYDROCHLORIDE
     Dosage: 10 MILLIGRAM, QD
     Route: 065
     Dates: start: 20170629, end: 20170809
  17. POTASSIUM CHLORIDE [Suspect]
     Active Substance: POTASSIUM CHLORIDE
     Indication: Product used for unknown indication
     Dosage: UNK
     Route: 064
     Dates: start: 20170515, end: 20170522
  18. PRIMPERAN [Suspect]
     Active Substance: METOCLOPRAMIDE HYDROCHLORIDE
     Indication: Product used for unknown indication
     Dosage: 300 MILLILITER, QD
     Route: 064
     Dates: start: 20170515, end: 20170520
  19. PRIMPERAN [Suspect]
     Active Substance: METOCLOPRAMIDE HYDROCHLORIDE
     Dosage: 100 MILLILITER, QD
     Route: 065
     Dates: start: 20170515, end: 20170520
  20. LOVENOX [Suspect]
     Active Substance: ENOXAPARIN SODIUM
     Indication: Product used for unknown indication
     Dosage: 8000 INTERNATIONAL UNIT, QD
     Route: 064
     Dates: start: 20170515, end: 20170524
  21. MIDAZOLAM [Suspect]
     Active Substance: MIDAZOLAM
     Indication: Sedative therapy
     Dosage: UNK
     Route: 064
     Dates: start: 20170428, end: 20170503

REACTIONS (4)
  - Neonatal respiratory distress syndrome [Recovered/Resolved]
  - Premature baby [Recovered/Resolved]
  - Low birth weight baby [Unknown]
  - Foetal exposure during pregnancy [Unknown]

NARRATIVE: CASE EVENT DATE: 20170704
